FAERS Safety Report 16139894 (Version 1)
Quarter: 2019Q1

REPORT INFORMATION
  Report Type: Spontaneous
  Country: US (occurrence: US)
  Receive Date: 20190331
  Receipt Date: 20190331
  Transmission Date: 20190418
  Serious: No
  Sender: FDA-Public Use
  Company Number: US-APOTEX-2019AP009181

PATIENT
  Age: 40 Year
  Sex: Female

DRUGS (4)
  1. CEPHALEXIN                         /00145501/ [Concomitant]
     Active Substance: CEPHALEXIN
     Indication: MASTITIS
     Dosage: UNK
     Route: 048
  2. FLUOXETINE [Suspect]
     Active Substance: FLUOXETINE HYDROCHLORIDE
     Indication: ALCOHOL ABUSE
     Dosage: UNK
     Route: 065
  3. BUSPIRONE [Suspect]
     Active Substance: BUSPIRONE HYDROCHLORIDE
     Indication: ALCOHOL ABUSE
     Dosage: UNK
     Route: 065
  4. TRAZODONE [Concomitant]
     Active Substance: TRAZODONE HYDROCHLORIDE
     Indication: ALCOHOL ABUSE
     Dosage: UNK
     Route: 065

REACTIONS (2)
  - Hyperprolactinaemia [Recovered/Resolved]
  - Plasma cell mastitis [Recovered/Resolved]
